FAERS Safety Report 7544271-1 (Version None)
Quarter: 2011Q2

REPORT INFORMATION
  Report Type: 
  Country: None (occurrence: None)
  Receive Date: 20110613
  Receipt Date: 20070927
  Transmission Date: 20111010
  Serious: Yes (Hospitalization)
  Sender: FDA-Public Use
  Company Number: PHMT2007CA01847

PATIENT
  Sex: Female

DRUGS (1)
  1. SANDOSTATIN LAR [Suspect]
     Indication: CARCINOID TUMOUR
     Dosage: 60 MG, UNK
     Route: 030
     Dates: start: 20040805

REACTIONS (4)
  - OEDEMA PERIPHERAL [None]
  - PULMONARY CONGESTION [None]
  - HIP FRACTURE [None]
  - FALL [None]
